FAERS Safety Report 23460754 (Version 4)
Quarter: 2024Q3

REPORT INFORMATION
  Report Type: Report from Study
  Country: CA (occurrence: CA)
  Receive Date: 20240131
  Receipt Date: 20240710
  Transmission Date: 20241017
  Serious: Yes (Other)
  Sender: ROCHE
  Company Number: CA-ROCHE-3487896

PATIENT
  Age: 69 Year
  Sex: Female
  Weight: 77.0 kg

DRUGS (29)
  1. ACTEMRA [Suspect]
     Active Substance: TOCILIZUMAB
     Indication: Rheumatoid arthritis
     Dosage: DRUG DOSE FIRST ADMINISTERED IS 312 MG MILLIGRAM(S)
     Route: 042
     Dates: start: 20230808, end: 20230912
  2. ACTEMRA [Suspect]
     Active Substance: TOCILIZUMAB
     Route: 042
  3. ASPIRIN [Concomitant]
     Active Substance: ASPIRIN
     Dosage: DRUG DOSE FIRST ADMINISTERED IS 81 MG MILLIGRAM(S)
     Route: 048
  4. ASPIRIN [Concomitant]
     Active Substance: ASPIRIN
     Route: 048
  5. AMLODIPINE [Concomitant]
     Active Substance: AMLODIPINE BESYLATE
  6. ATIVAN [Concomitant]
     Active Substance: LORAZEPAM
     Dosage: DRUG DOSE FIRST ADMINISTERED IS 1 MG MILLIGRAM(S)?MOREDOSAGEINFO IS AS NEEDED
     Route: 048
  7. ATIVAN [Concomitant]
     Active Substance: LORAZEPAM
     Route: 048
  8. EZETIMIBE [Concomitant]
     Active Substance: EZETIMIBE
     Dosage: DRUG DOSE FIRST ADMINISTERED IS 10 MG MILLIGRAM(S)
     Route: 048
  9. EZETIMIBE [Concomitant]
     Active Substance: EZETIMIBE
     Route: 048
  10. PLAQUENIL [Concomitant]
     Active Substance: HYDROXYCHLOROQUINE SULFATE
     Route: 048
  11. HYDROCHLOROTHIAZIDE [Concomitant]
     Active Substance: HYDROCHLOROTHIAZIDE
  12. LANSOPRAZOLE [Concomitant]
     Active Substance: LANSOPRAZOLE
  13. PERCOCET [Concomitant]
     Active Substance: ACETAMINOPHEN\OXYCODONE HYDROCHLORIDE
     Dosage: DOSE- 2.5/325 MG
     Route: 048
  14. LIPITOR [Concomitant]
     Active Substance: ATORVASTATIN CALCIUM
     Dosage: DRUG DOSE FIRST ADMINISTERED IS 40 MG MILLIGRAM(S)
     Route: 048
  15. LIPITOR [Concomitant]
     Active Substance: ATORVASTATIN CALCIUM
     Route: 048
  16. METHOTREXATE [Concomitant]
     Active Substance: METHOTREXATE
     Dosage: DRUG DOSE FIRST ADMINISTERED IS 20 MG MILLIGRAM(S)
  17. METHOTREXATE [Concomitant]
     Active Substance: METHOTREXATE
     Route: 048
  18. MODAFINIL [Concomitant]
     Active Substance: MODAFINIL
  19. NITROGLYCERIN [Concomitant]
     Active Substance: NITROGLYCERIN
     Route: 048
  20. NASONEX [Concomitant]
     Active Substance: MOMETASONE FUROATE
  21. OZEMPIC [Concomitant]
     Active Substance: SEMAGLUTIDE
     Dosage: DRUG DOSE FIRST ADMINISTERED IS 0.25/0.5 MG MILLIGRAM(S)
     Route: 058
  22. OZEMPIC [Concomitant]
     Active Substance: SEMAGLUTIDE
     Dosage: DOSE - 0.25-0.5 MG
     Route: 058
  23. RAMIPRIL [Concomitant]
     Active Substance: RAMIPRIL
     Dosage: DRUG DOSE FIRST ADMINISTERED IS 10 MG MILLIGRAM(S)
     Route: 048
  24. RAMIPRIL [Concomitant]
     Active Substance: RAMIPRIL
     Route: 048
  25. SULFASALAZINE [Concomitant]
     Active Substance: SULFASALAZINE
  26. SULFASALAZINE [Concomitant]
     Active Substance: SULFASALAZINE
     Route: 048
  27. TEGRETOL [Concomitant]
     Active Substance: CARBAMAZEPINE
     Dosage: DRUG DOSE FIRST ADMINISTERED IS 200 MG MILLIGRAM(S)?MOREDOSAGEINFO IS AS NEEDED
     Route: 048
  28. TEGRETOL [Concomitant]
     Active Substance: CARBAMAZEPINE
     Route: 048
  29. EZETIMIBE [Concomitant]
     Active Substance: EZETIMIBE

REACTIONS (3)
  - Pneumonia [Recovered/Resolved]
  - Bronchitis [Recovered/Resolved]
  - Lower respiratory tract infection [Recovered/Resolved]

NARRATIVE: CASE EVENT DATE: 20240106
